FAERS Safety Report 9992320 (Version 3)
Quarter: 2015Q1

REPORT INFORMATION
  Report Type: Spontaneous
  Country: US (occurrence: US)
  Receive Date: 20140310
  Receipt Date: 20150316
  Transmission Date: 20150721
  Serious: No
  Sender: FDA-Public Use
  Company Number: US-ASTELLAS-2013US013567

PATIENT
  Sex: Male

DRUGS (4)
  1. XTANDI [Suspect]
     Active Substance: ENZALUTAMIDE
     Indication: PROSTATE CANCER
     Route: 048
     Dates: start: 20131115
  2. XTANDI [Suspect]
     Active Substance: ENZALUTAMIDE
     Dosage: 160 MG, TOTAL DAILY DOSE (4X40 MG)
     Route: 048
  3. XTANDI [Suspect]
     Active Substance: ENZALUTAMIDE
     Route: 048
     Dates: start: 20131115
  4. XTANDI [Suspect]
     Active Substance: ENZALUTAMIDE
     Route: 048
     Dates: start: 20131115

REACTIONS (8)
  - Memory impairment [Unknown]
  - Somnolence [Unknown]
  - Fatigue [Not Recovered/Not Resolved]
  - Dizziness [Not Recovered/Not Resolved]
  - Constipation [Unknown]
  - Hot flush [Unknown]
  - Asthenia [Unknown]
  - Rhinorrhoea [Unknown]
